FAERS Safety Report 5367036-8 (Version None)
Quarter: 2007Q2

REPORT INFORMATION
  Report Type: 
  Country: None (occurrence: None)
  Receive Date: 20070622
  Receipt Date: 20070619
  Transmission Date: 20071010
  Serious: Yes (Hospitalization)
  Sender: FDA-Public Use
  Company Number: A0658251A

PATIENT
  Age: 67 Year
  Sex: Female

DRUGS (7)
  1. AVANDIA [Suspect]
     Route: 048
     Dates: start: 19860101
  2. GLUCOTROL [Concomitant]
  3. GLUCOPHAGE [Concomitant]
  4. ISORDIL [Concomitant]
  5. DIURETIC [Concomitant]
  6. POTASSIUM ACETATE [Concomitant]
  7. ATORVASTATIN [Concomitant]

REACTIONS (2)
  - CARDIAC PACEMAKER INSERTION [None]
  - CORONARY ARTERIAL STENT INSERTION [None]
